FAERS Safety Report 4280883-9 (Version None)
Quarter: 2004Q1

REPORT INFORMATION
  Report Type: 
  Country: None (occurrence: None)
  Receive Date: 20040127
  Receipt Date: 20040112
  Transmission Date: 20041129
  Serious: Yes (Hospitalization)
  Sender: FDA-Public Use
  Company Number: 169225

PATIENT
  Age: 51 Year
  Sex: Female
  Weight: 65.7716 kg

DRUGS (3)
  1. AVONEX [Suspect]
     Indication: MULTIPLE SCLEROSIS
     Dosage: 30 MCG QW IM
     Route: 030
     Dates: start: 20000101
  2. VITAMIN CAP [Concomitant]
  3. KLOR-CON [Concomitant]

REACTIONS (6)
  - BRAIN OEDEMA [None]
  - CONDITION AGGRAVATED [None]
  - DEPRESSION [None]
  - HYPERCHOLESTEROLAEMIA [None]
  - MULTIPLE SCLEROSIS [None]
  - WHITE BLOOD CELL COUNT DECREASED [None]
